FAERS Safety Report 8099361-4 (Version None)
Quarter: 2012Q1

REPORT INFORMATION
  Report Type: 
  Country: None (occurrence: None)
  Receive Date: 20120129
  Receipt Date: 20110914
  Transmission Date: 20120608
  Serious: No
  Sender: FDA-Public Use
  Company Number: US-ABBOTT-11P-163-0855006-00

PATIENT
  Age: 54 Year
  Sex: Male

DRUGS (6)
  1. HUMIRA [Suspect]
     Indication: PSORIASIS
     Dates: start: 20110826
  2. LISINOPRIL [Concomitant]
     Indication: HYPERTENSION
  3. PAXIL [Concomitant]
     Indication: DEPRESSION
  4. VICODIN [Concomitant]
     Indication: PAIN
     Dosage: 5/500 MG
  5. FLEXERIL [Concomitant]
     Indication: PAIN
  6. TOPICAL CREAM [Concomitant]
     Indication: PSORIASIS
     Route: 061

REACTIONS (6)
  - LOSS OF CONSCIOUSNESS [None]
  - APHASIA [None]
  - DYSARTHRIA [None]
  - FATIGUE [None]
  - NEUROLOGICAL SYMPTOM [None]
  - INCOHERENT [None]
